FAERS Safety Report 7456094-2 (Version None)
Quarter: 2011Q2

REPORT INFORMATION
  Report Type: 
  Country: None (occurrence: None)
  Receive Date: 20110503
  Receipt Date: 20110428
  Transmission Date: 20111010
  Serious: No
  Sender: FDA-Public Use
  Company Number: US-PFIZER INC-2011060738

PATIENT
  Sex: Female

DRUGS (4)
  1. ATENOLOL [Concomitant]
     Dosage: UNK
  2. VESICARE [Concomitant]
     Dosage: UNK
  3. RISPERDAL [Concomitant]
     Dosage: UNK
  4. EFFEXOR XR [Suspect]
     Dosage: 150 MG, 1X/DAY

REACTIONS (4)
  - DRUG WITHDRAWAL SYNDROME [None]
  - DISORIENTATION [None]
  - DIZZINESS [None]
  - FEELING ABNORMAL [None]
